FAERS Safety Report 15465585 (Version 8)
Quarter: 2018Q4

REPORT INFORMATION
  Report Type: Spontaneous
  Country: US (occurrence: US)
  Receive Date: 20181004
  Receipt Date: 20181212
  Transmission Date: 20190204
  Serious: Yes (Life-Threatening, Other)
  Sender: FDA-Public Use
  Company Number: PHEH2018US041081

PATIENT
  Sex: Female

DRUGS (7)
  1. LISINOPRIL. [Suspect]
     Active Substance: LISINOPRIL
     Indication: BLOOD PRESSURE INADEQUATELY CONTROLLED
     Route: 065
  2. AMLODIPINE BESYLATE AND BENAZEPRIL HYDROCHLORIDE [Suspect]
     Active Substance: AMLODIPINE BESYLATE\BENAZEPRIL HYDROCHLORIDE
     Indication: TINNITUS
     Route: 065
  3. LOSARTAN. [Suspect]
     Active Substance: LOSARTAN
     Indication: SLEEP DISORDER
     Route: 065
  4. HYDROCHLOROTHIAZIDE AND LISINOPRIL [Suspect]
     Active Substance: HYDROCHLOROTHIAZIDE\LISINOPRIL
     Indication: BLOOD PRESSURE INADEQUATELY CONTROLLED
     Route: 065
  5. ZANTAC [Suspect]
     Active Substance: RANITIDINE HYDROCHLORIDE
     Indication: SLEEP DISORDER
     Dosage: UNK
     Route: 065
  6. ZANTAC [Suspect]
     Active Substance: RANITIDINE HYDROCHLORIDE
     Indication: SOMATIC SYMPTOM DISORDER
  7. METOLAZONE. [Suspect]
     Active Substance: METOLAZONE
     Indication: SLEEP DISORDER
     Route: 065

REACTIONS (19)
  - Abdominal discomfort [Unknown]
  - Pruritus [Unknown]
  - Alopecia [Unknown]
  - Feeling abnormal [Unknown]
  - Blood pressure fluctuation [Unknown]
  - Intracranial aneurysm [Unknown]
  - Ruptured cerebral aneurysm [Unknown]
  - Ear disorder [Unknown]
  - Pollakiuria [Unknown]
  - Dyskinesia [Unknown]
  - Drug ineffective [Unknown]
  - Stress [Unknown]
  - Blood pressure decreased [Unknown]
  - Fatigue [Unknown]
  - Abdominal pain upper [Unknown]
  - Wrong technique in product usage process [Unknown]
  - Malaise [Unknown]
  - Hypertension [Unknown]
  - Bladder irritation [Unknown]
